FAERS Safety Report 5502016-0 (Version None)
Quarter: 2007Q4

REPORT INFORMATION
  Report Type: 
  Country: None (occurrence: None)
  Receive Date: 20071030
  Receipt Date: 20071022
  Transmission Date: 20080405
  Serious: Yes (Hospitalization)
  Sender: FDA-Public Use
  Company Number: B0493064A

PATIENT
  Age: 20 Year
  Sex: Female

DRUGS (5)
  1. CEFTAZIDIME [Suspect]
     Indication: PSEUDOMONAS INFECTION
     Dosage: 3G THREE TIMES PER DAY
     Route: 042
     Dates: start: 20001201
  2. AZITHROMYCIN [Suspect]
     Indication: PSEUDOMONAS INFECTION
  3. COLOMYCIN [Suspect]
     Indication: PSEUDOMONAS INFECTION
     Route: 042
  4. TOBRAMYCIN [Suspect]
     Indication: PSEUDOMONAS INFECTION
     Dosage: 160MG THREE TIMES PER DAY
     Route: 042
     Dates: start: 20001201
  5. ANTIBIOTICS [Concomitant]
     Route: 042

REACTIONS (10)
  - ARTHRALGIA [None]
  - BLOOD CREATININE INCREASED [None]
  - CREATININE RENAL CLEARANCE DECREASED [None]
  - DIZZINESS [None]
  - DRUG LEVEL INCREASED [None]
  - EOSINOPHILIA [None]
  - HAEMATURIA [None]
  - HEADACHE [None]
  - NAUSEA [None]
  - RENAL FAILURE ACUTE [None]
